FAERS Safety Report 6772219-6 (Version None)
Quarter: 2010Q2

REPORT INFORMATION
  Report Type: 
  Country: None (occurrence: None)
  Receive Date: 20100616
  Receipt Date: 20100605
  Transmission Date: 20101027
  Serious: Yes (Hospitalization)
  Sender: FDA-Public Use
  Company Number: SY-JNJFOC-20100604336

PATIENT
  Age: 40 Year

DRUGS (2)
  1. REMICADE [Suspect]
     Indication: ANKYLOSING SPONDYLITIS
     Dosage: 2 INFUSIONS
     Route: 042
  2. NSAID [Concomitant]

REACTIONS (4)
  - AGITATION [None]
  - HYPERSENSITIVITY [None]
  - INCONTINENCE [None]
  - INFUSION RELATED REACTION [None]
